FAERS Safety Report 23895389 (Version 1)
Quarter: 2024Q2

REPORT INFORMATION
  Report Type: Spontaneous
  Country: GB (occurrence: GB)
  Receive Date: 20240524
  Receipt Date: 20240524
  Transmission Date: 20240716
  Serious: Yes (Hospitalization, Other)
  Sender: FDA-Public Use
  Company Number: GB-SUN PHARMACEUTICAL INDUSTRIES LTD-2024R1-447577

PATIENT
  Age: 31 Year
  Sex: Female

DRUGS (1)
  1. IBUPROFEN [Suspect]
     Active Substance: IBUPROFEN
     Indication: Dysmenorrhoea
     Dosage: UNK
     Route: 065

REACTIONS (6)
  - Eye pruritus [Unknown]
  - Blister [Unknown]
  - Skin burning sensation [Unknown]
  - Vision blurred [Unknown]
  - Stevens-Johnson syndrome [Unknown]
  - Prescription drug used without a prescription [Unknown]
